FAERS Safety Report 9403018 (Version 2)
Quarter: 2013Q3

REPORT INFORMATION
  Report Type: Spontaneous
  Country: US (occurrence: None)
  Receive Date: 20130712
  Receipt Date: 20130821
  Transmission Date: 20140515
  Serious: Yes (Hospitalization)
  Sender: FDA-Public Use
  Company Number: 1307-861

PATIENT
  Sex: Male

DRUGS (8)
  1. RILONACEPT [Suspect]
     Indication: RENAL FAILURE CHRONIC
     Route: 058
     Dates: start: 20130613
  2. CALCIUM ACETATE (CALCIUM ACETATE) [Concomitant]
  3. CHOLECALCIFEROL (COLECALCIFEROL) [Concomitant]
  4. FLUOXETINE (FLUOXETINE) [Concomitant]
  5. LANTUS INSULINE (INSULIN GLARGINE) [Concomitant]
  6. HUMALOG INSULIN (INSULIN LISPRO) [Concomitant]
  7. LOSARTAN (LOSARTAN) [Concomitant]
  8. INIFEDIPINE (NIFEDIPINE) [Concomitant]

REACTIONS (5)
  - Abscess [None]
  - Staphylococcal sepsis [None]
  - Sepsis [None]
  - Cellulitis [None]
  - Candida infection [None]
